FAERS Safety Report 24173343 (Version 2)
Quarter: 2024Q3

REPORT INFORMATION
  Report Type: Spontaneous
  Country: CA (occurrence: CA)
  Receive Date: 20240805
  Receipt Date: 20240808
  Transmission Date: 20241016
  Serious: Yes (Life-Threatening, Hospitalization, Other)
  Sender: BRISTOL MYERS SQUIBB
  Company Number: CA-BRISTOL-MYERS SQUIBB COMPANY-2024-122344

PATIENT
  Age: 53 Year
  Sex: Female
  Weight: 98 kg

DRUGS (4)
  1. ELIQUIS [Suspect]
     Active Substance: APIXABAN
     Indication: Pulmonary embolism
     Route: 048
  2. HYDROMORPHONE [Concomitant]
     Active Substance: HYDROMORPHONE
     Indication: Product used for unknown indication
  3. PANTOPRAZOLE [Concomitant]
     Active Substance: PANTOPRAZOLE
     Indication: Product used for unknown indication
  4. PENTOXIFYLLINE [Concomitant]
     Active Substance: PENTOXIFYLLINE
     Indication: Skin ulcer
     Route: 048

REACTIONS (4)
  - Cerebral haemorrhage [Recovered/Resolved with Sequelae]
  - Intraventricular haemorrhage [Recovered/Resolved with Sequelae]
  - Hospitalisation [Recovered/Resolved with Sequelae]
  - Adverse event [Recovered/Resolved with Sequelae]
